FAERS Safety Report 22704504 (Version 9)
Quarter: 2024Q2

REPORT INFORMATION
  Report Type: Spontaneous
  Country: PK (occurrence: PK)
  Receive Date: 20230714
  Receipt Date: 20240515
  Transmission Date: 20240716
  Serious: Yes (Other)
  Sender: FDA-Public Use
  Company Number: PK-PFIZER INC-PV202300118546

PATIENT
  Age: 32 Year
  Sex: Female

DRUGS (19)
  1. ENBREL [Suspect]
     Active Substance: BENZYL ALCOHOL\ETANERCEPT
     Indication: Arthritis
     Dosage: 50 MILLIGRAM, QWK (50 MG, WEEKLY)
     Route: 058
     Dates: start: 20230605
  2. ENBREL [Suspect]
     Active Substance: BENZYL ALCOHOL\ETANERCEPT
     Indication: Spondyloarthropathy
     Dosage: UNK
     Route: 065
  3. DELTACORTRIL [Suspect]
     Active Substance: PREDNISOLONE
     Indication: Product used for unknown indication
     Dosage: 7.5 MILLIGRAM, QD (7.5 MG, DAILY)
     Route: 065
  4. DELTACORTRIL [Suspect]
     Active Substance: PREDNISOLONE
     Dosage: 1.5 DOSAGE FORM, QD (1.5 TABLET IN MORNING AFTER MEAL)
     Route: 065
  5. Motival [Concomitant]
     Dosage: 1 DOSAGE FORM, QD (1 TAB AT NIGHT AFTER MEAL)
     Route: 065
  6. QALSAN D [Concomitant]
     Dosage: 1 DOSAGE FORM, QD (1 TAB IN EVENING AFTER MEAL)
     Route: 065
  7. FOLIC ACID [Concomitant]
     Active Substance: FOLIC ACID
     Dosage: 1 DOSAGE FORM, QD (1 TAB IN MORNING AFTER MEAL)
     Route: 065
  8. DICLOFENAC DIETHYLAMINE [Concomitant]
     Active Substance: DICLOFENAC DIETHYLAMINE
     Dosage: UNK (APPLY LOCALLY, THREE TIMES A DAY WHEN REQUIRED)
  9. DICLOFENAC DIETHYLAMINE [Concomitant]
     Active Substance: DICLOFENAC DIETHYLAMINE
     Dosage: APPLY LOCALLY, THREE TIMES A DAY WHEN REQUIRED
  10. TONOFLEX P [Concomitant]
     Indication: Pain
     Dosage: 1 DOSAGE FORM, TID (1+1+1+0, AFTER MEAL)
  11. Risek [Concomitant]
     Dosage: 1 DOSAGE FORM, QD (1 CAP ONCE A DAY BEFORE MEAL FOR 4 WEEKS)
     Route: 065
  12. Sunny d [Concomitant]
     Dosage: 1 DOSAGE FORM, CYCLICAL (1 CAPSULE EVERY TWO WEEKS, AFTER MEAL, FOR 3 MONTHS)
  13. VOLTAROL [Concomitant]
     Active Substance: DICLOFENAC SODIUM
     Dosage: 1 DOSAGE FORM, BID (1+0+1+0 IN MORNING AND EVENING FOR 4 WEEKS)
     Route: 065
  14. Zeegap [Concomitant]
     Dosage: 1 DOSAGE FORM, QD (1 TABLET AT NIGHT)
     Route: 065
  15. Zeegap [Concomitant]
     Dosage: 1 TABLET AT NIGHT
  16. PANADOL [Concomitant]
     Active Substance: ACETAMINOPHEN
     Dosage: UNK
     Route: 065
  17. ESSO [Concomitant]
     Dosage: UNK UNK, QD (1X TABLETS, ONCE A DAY, BEFORE MEAL)
     Route: 065
  18. ESSO [Concomitant]
     Dosage: 1X TABLETS, ONCE A DAY, BEFORE MEAL
  19. DICLOFENAC SODIUM [Concomitant]
     Active Substance: DICLOFENAC\DICLOFENAC SODIUM
     Dosage: UNK (1+0+1+0, 1+1 IN MORNING AND EVENING FOR 4 WEEKS)
     Route: 065

REACTIONS (17)
  - Steroid dependence [Unknown]
  - Fibromyalgia [Unknown]
  - Red blood cell sedimentation rate increased [Unknown]
  - Platelet count increased [Recovering/Resolving]
  - Mean cell volume decreased [Unknown]
  - Blood creatine decreased [Not Recovered/Not Resolved]
  - Haemoglobin decreased [Recovering/Resolving]
  - Musculoskeletal stiffness [Unknown]
  - Synovitis [Unknown]
  - Mouth ulceration [Unknown]
  - Alopecia [Unknown]
  - Back pain [Unknown]
  - White blood cells urine positive [Unknown]
  - Pain [Unknown]
  - Dry eye [Unknown]
  - Arthralgia [Unknown]
  - Rash [Unknown]
